FAERS Safety Report 16697822 (Version 1)
Quarter: 2019Q4

REPORT INFORMATION
  Report Type: Spontaneous
  Country: US (occurrence: US)
  Receive Date: 20190812
  Receipt Date: 20190812
  Transmission Date: 20200122
  Serious: Yes (Other)
  Sender: FDA-Public Use
  Company Number: None

PATIENT
  Age: 51 Year
  Sex: Female
  Weight: 173.25 kg

DRUGS (6)
  1. HYDROXYCHLORQUINE [Concomitant]
     Active Substance: HYDROXYCHLOROQUINE
  2. DULOXETINE. [Concomitant]
     Active Substance: DULOXETINE
  3. VITAMIN D [Concomitant]
     Active Substance: VITAMIN D NOS
  4. FLUCONAZOLE 150 MG CAPSULES [Suspect]
     Active Substance: FLUCONAZOLE
     Indication: FUNGAL INFECTION
     Dosage: ?          QUANTITY:1 TABLET(S);OTHER FREQUENCY:ONE TIME;?
     Route: 048
     Dates: start: 20190811, end: 20190812
  5. MULTI-VITAMINS [Concomitant]
  6. LISINOPRIL. [Concomitant]
     Active Substance: LISINOPRIL

REACTIONS (6)
  - Urticaria [None]
  - Adverse drug reaction [None]
  - Fungal infection [None]
  - Pruritus [None]
  - Blister [None]
  - Rash macular [None]

NARRATIVE: CASE EVENT DATE: 20190812
